FAERS Safety Report 18339474 (Version 1)
Quarter: 2020Q4

REPORT INFORMATION
  Report Type: Spontaneous
  Country: US (occurrence: US)
  Receive Date: 20201001
  Receipt Date: 20201001
  Transmission Date: 20210113
  Serious: No
  Sender: FDA-Public Use
  Company Number: None

PATIENT
  Age: 56 Year
  Sex: Female

DRUGS (3)
  1. CELECOXIB. [Concomitant]
     Active Substance: CELECOXIB
  2. AMOXICILLIN. [Concomitant]
     Active Substance: AMOXICILLIN
  3. DIMETHYL FUMARATE 240MG DR CAPSULES [Suspect]
     Active Substance: DIMETHYL FUMARATE
     Indication: MULTIPLE SCLEROSIS
     Dosage: ?          QUANTITY:60;?
     Route: 048
     Dates: start: 20200924, end: 20200927

REACTIONS (5)
  - Drug hypersensitivity [None]
  - Skin laceration [None]
  - Eye pruritus [None]
  - Pruritus [None]
  - Product substitution issue [None]

NARRATIVE: CASE EVENT DATE: 20200924
